FAERS Safety Report 25941036 (Version 1)
Quarter: 2025Q4

REPORT INFORMATION
  Report Type: Spontaneous
  Country: US (occurrence: None)
  Receive Date: 20251018
  Receipt Date: 20251018
  Transmission Date: 20260117
  Serious: No
  Sender: FDA-CTU
  Company Number: None

PATIENT
  Age: 30 Year
  Sex: Female

DRUGS (1)
  1. 4 KIDS COMPLETE COLD AND MUCUS [Suspect]
     Active Substance: HOMEOPATHICS

REACTIONS (1)
  - Expired product administered [None]

NARRATIVE: CASE EVENT DATE: 20251017
